FAERS Safety Report 4505013-7 (Version None)
Quarter: 2004Q4

REPORT INFORMATION
  Report Type: 
  Country: None (occurrence: None)
  Receive Date: 20041116
  Receipt Date: 20041105
  Transmission Date: 20050328
  Serious: Yes (Life-Threatening)
  Sender: FDA-Public Use
  Company Number: 2004AP05300

PATIENT
  Age: 60 Year
  Sex: Male
  Weight: 43 kg

DRUGS (14)
  1. DIPRIVAN [Suspect]
     Indication: INDUCTION OF ANAESTHESIA
     Dosage: 100 MG IV
     Route: 042
     Dates: start: 20040902, end: 20040902
  2. TENORMIN [Suspect]
     Indication: HYPERTENSION
     Dosage: 50 MG DAILY PO
     Route: 048
     Dates: end: 20030902
  3. TENORMIN [Suspect]
     Indication: HYPERTENSION
     Dosage: 25 MG DAILY PO
     Route: 048
     Dates: start: 20030902
  4. DOPAMINE HCL [Suspect]
     Indication: HYPOTENSION
     Dosage: 25 MG IV
     Route: 042
     Dates: start: 20030902
  5. AMLODIPINE BESYLATE [Concomitant]
  6. VECURONIUM BROMIDE [Concomitant]
  7. SUCCINYLCHOLINE CHLORIDE [Concomitant]
  8. NITROUS OXIDE [Concomitant]
  9. OXYGEN [Concomitant]
  10. SEVOFLURANE [Concomitant]
  11. HALCION [Concomitant]
  12. ATROPINE SULFATE [Concomitant]
  13. MIDAZOLAM HCL [Concomitant]
  14. FAMOTIDINE [Concomitant]

REACTIONS (10)
  - ARTERIOSPASM CORONARY [None]
  - CORONARY ARTERY ATHEROSCLEROSIS [None]
  - CORONARY ARTERY OCCLUSION [None]
  - DRUG INTERACTION [None]
  - ECG SIGNS OF MYOCARDIAL ISCHAEMIA [None]
  - HAEMODYNAMIC INSTABILITY [None]
  - PROCEDURAL COMPLICATION [None]
  - PROCEDURAL HYPOTENSION [None]
  - SINUS BRADYCARDIA [None]
  - VENTRICULAR TACHYCARDIA [None]
